FAERS Safety Report 5604396-4 (Version None)
Quarter: 2008Q1

REPORT INFORMATION
  Report Type: 
  Country: None (occurrence: None)
  Receive Date: 20080128
  Receipt Date: 20080118
  Transmission Date: 20080703
  Serious: Yes (Other)
  Sender: FDA-Public Use
  Company Number: CA-JNJFOC-20080101823

PATIENT
  Sex: Female
  Weight: 98 kg

DRUGS (3)
  1. REMICADE [Suspect]
     Indication: CROHN'S DISEASE
     Dosage: 24 INFUSIONS
     Route: 042
  2. TYLENOL [Concomitant]
     Indication: PREMEDICATION
     Route: 048
  3. BENADRYL [Concomitant]
     Indication: PREMEDICATION
     Route: 048

REACTIONS (1)
  - BREAST CANCER RECURRENT [None]
